FAERS Safety Report 17495119 (Version 1)
Quarter: 2020Q1

REPORT INFORMATION
  Report Type: Spontaneous
  Country: DE (occurrence: DE)
  Receive Date: 20200304
  Receipt Date: 20200304
  Transmission Date: 20200409
  Serious: Yes (Other)
  Sender: FDA-Public Use
  Company Number: DE-PFIZER INC-2020090645

PATIENT
  Age: 44 Year
  Sex: Female

DRUGS (1)
  1. CYTOTEC [Suspect]
     Active Substance: MISOPROSTOL
     Indication: LABOUR INDUCTION
     Route: 048
     Dates: start: 20090110, end: 20090111

REACTIONS (5)
  - Product use in unapproved indication [Unknown]
  - Disseminated intravascular coagulation [Recovered/Resolved with Sequelae]
  - Off label use [Unknown]
  - Loss of consciousness [Recovered/Resolved with Sequelae]
  - Cardiovascular disorder [Recovered/Resolved with Sequelae]

NARRATIVE: CASE EVENT DATE: 20090110
